FAERS Safety Report 4941559-5 (Version None)
Quarter: 2006Q1

REPORT INFORMATION
  Report Type: 
  Country: None (occurrence: None)
  Receive Date: 20060310
  Receipt Date: 20060310
  Transmission Date: 20060701
  Serious: Yes (Hospitalization)
  Sender: FDA-Public Use
  Company Number: None

PATIENT
  Age: 38 Year
  Sex: Male
  Weight: 103.8737 kg

DRUGS (2)
  1. TIKOSYN [Suspect]
     Indication: ATRIAL FIBRILLATION
     Dosage: 500MCG  BID  PO
     Route: 048
     Dates: start: 20051024, end: 20051027
  2. TIKOSYN [Suspect]
     Indication: CARDIOMYOPATHY
     Dosage: 500MCG  BID  PO
     Route: 048
     Dates: start: 20051024, end: 20051027

REACTIONS (3)
  - CARDIO-RESPIRATORY ARREST [None]
  - ELECTROCARDIOGRAM QT CORRECTED INTERVAL PROLONGED [None]
  - TORSADE DE POINTES [None]
